FAERS Safety Report 7622648-3 (Version None)
Quarter: 2011Q3

REPORT INFORMATION
  Report Type: 
  Country: None (occurrence: None)
  Receive Date: 20110719
  Receipt Date: 20110719
  Transmission Date: 20111222
  Serious: No
  Sender: FDA-Public Use
  Company Number: None

PATIENT
  Sex: Female

DRUGS (1)
  1. SNORESTOP EXTINGUISHER ORAL SPRAY [Suspect]
     Dosage: X1 NIGHT

REACTIONS (2)
  - INITIAL INSOMNIA [None]
  - FEELING ABNORMAL [None]
